FAERS Safety Report 19578981 (Version 2)
Quarter: 2022Q2

REPORT INFORMATION
  Report Type: Report from Study
  Country: JP (occurrence: JP)
  Receive Date: 20210720
  Receipt Date: 20220505
  Transmission Date: 20220721
  Serious: Yes (Hospitalization, Other)
  Sender: FDA-Public Use
  Company Number: JP-CELLTRION INC.-2020JP021703

PATIENT

DRUGS (15)
  1. INFLIXIMAB [Suspect]
     Active Substance: INFLIXIMAB
     Indication: Colitis ulcerative
     Dosage: 415 MILLIGRAM (WT: 83 KG)
     Route: 041
     Dates: start: 20181126, end: 20181126
  2. INFLIXIMAB [Suspect]
     Active Substance: INFLIXIMAB
     Dosage: 420 MILLIGRAM (WT: 84 KG)
     Route: 041
     Dates: start: 20190121, end: 20190121
  3. INFLIXIMAB [Suspect]
     Active Substance: INFLIXIMAB
     Dosage: 425 MILLIGRAM (WT: 85 KG)
     Route: 041
     Dates: start: 20190318, end: 20190318
  4. INFLIXIMAB [Suspect]
     Active Substance: INFLIXIMAB
     Dosage: 425 MILLIGRAM (WT: 85 KG)
     Route: 041
     Dates: start: 20190513, end: 20190513
  5. INFLIXIMAB [Suspect]
     Active Substance: INFLIXIMAB
     Dosage: 435 MILLIGRAM (WT: 87.3 KG)
     Route: 041
     Dates: start: 20191028, end: 20191028
  6. INFLIXIMAB [Suspect]
     Active Substance: INFLIXIMAB
     Dosage: 425 MILLIGRAM (WT: 85 KG)
     Route: 041
     Dates: start: 20201130, end: 20201130
  7. INFLIXIMAB [Suspect]
     Active Substance: INFLIXIMAB
     Dosage: 420 MILLIGRAM (WT: 84 KG)
     Route: 041
     Dates: start: 20211206, end: 20211206
  8. AZATHIOPRINE [Concomitant]
     Active Substance: AZATHIOPRINE
     Indication: Colitis ulcerative
     Dosage: 50 MILLIGRAM/DAY
     Route: 048
     Dates: start: 20170626
  9. AZATHIOPRINE [Concomitant]
     Active Substance: AZATHIOPRINE
     Dosage: 75 MILLIGRAM/DAY
     Route: 048
     Dates: start: 20210927, end: 20211024
  10. AZATHIOPRINE [Concomitant]
     Active Substance: AZATHIOPRINE
     Dosage: 100 MILLIGRAM/DAY
     Route: 048
     Dates: start: 20211025
  11. MESALAMINE [Concomitant]
     Active Substance: MESALAMINE
     Indication: Colitis ulcerative
     Dosage: 4000 MILLIGRAM/DAY
     Route: 048
     Dates: start: 20170710
  12. MESALAMINE [Concomitant]
     Active Substance: MESALAMINE
     Dosage: 1 GRAM/DAY
     Route: 054
     Dates: start: 20210913, end: 20211024
  13. MESALAMINE [Concomitant]
     Active Substance: MESALAMINE
     Dosage: UNK
     Route: 054
     Dates: start: 20211025, end: 20211205
  14. MESALAMINE [Concomitant]
     Active Substance: MESALAMINE
     Dosage: UNK
     Route: 054
     Dates: start: 20211206
  15. SULFASALAZINE [Concomitant]
     Active Substance: SULFASALAZINE
     Dosage: 3000 MILLIGRAM/DAY
     Route: 048
     Dates: start: 20170724

REACTIONS (9)
  - Hip arthroplasty [Recovered/Resolved]
  - Colitis ulcerative [Unknown]
  - Chronic gastritis [Not Recovered/Not Resolved]
  - Hepatic steatosis [Unknown]
  - Hyperlipidaemia [Not Recovered/Not Resolved]
  - Duodenal polyp [Recovered/Resolved]
  - Hypertension [Not Recovered/Not Resolved]
  - Off label use [Unknown]
  - Underdose [Unknown]

NARRATIVE: CASE EVENT DATE: 20190318
